FAERS Safety Report 17870835 (Version 1)
Quarter: 2020Q2

REPORT INFORMATION
  Report Type: Spontaneous
  Country: US (occurrence: US)
  Receive Date: 20200607
  Receipt Date: 20200607
  Transmission Date: 20200714
  Serious: Yes (Disabling, Other)
  Sender: FDA-Public Use
  Company Number: None

PATIENT
  Age: 68 Year
  Sex: Male
  Weight: 74.25 kg

DRUGS (2)
  1. VITAMINS [Concomitant]
     Active Substance: VITAMINS
  2. TAMSULOSIN 0.4 MG [Suspect]
     Active Substance: TAMSULOSIN
     Indication: HYPERTENSION
     Dosage: QUANTITY:1 CAPSULE(S);?
     Route: 048
     Dates: start: 20190601, end: 20200201

REACTIONS (3)
  - Cardiovascular symptom [None]
  - Hypertension [None]
  - Dyspepsia [None]

NARRATIVE: CASE EVENT DATE: 20190601
